FAERS Safety Report 13660382 (Version 1)
Quarter: 2017Q2

REPORT INFORMATION
  Report Type: Spontaneous
  Country: US (occurrence: US)
  Receive Date: 20170616
  Receipt Date: 20170616
  Transmission Date: 20170830
  Serious: Yes (Other)
  Sender: FDA-Public Use
  Company Number: US-ALEXION PHARMACEUTICALS INC-A201706438

PATIENT
  Sex: Male

DRUGS (1)
  1. SOLIRIS [Suspect]
     Active Substance: ECULIZUMAB
     Indication: PAROXYSMAL NOCTURNAL HAEMOGLOBINURIA
     Route: 042

REACTIONS (8)
  - Haematocrit decreased [Unknown]
  - Cough [Unknown]
  - Platelet count abnormal [Unknown]
  - Malaise [Unknown]
  - Bronchitis [Unknown]
  - Red blood cell count decreased [Unknown]
  - Pneumonia [Unknown]
  - Haemoglobin decreased [Unknown]
